FAERS Safety Report 24405376 (Version 1)
Quarter: 2024Q4

REPORT INFORMATION
  Report Type: Report from Study
  Country: CN (occurrence: CN)
  Receive Date: 20241007
  Receipt Date: 20241007
  Transmission Date: 20250114
  Serious: No
  Sender: ROCHE
  Company Number: CN-ROCHE-3580152

PATIENT

DRUGS (1)
  1. GAZYVA [Suspect]
     Active Substance: OBINUTUZUMAB
     Indication: Glomerulonephritis membranous
     Route: 042

REACTIONS (7)
  - Neutropenia [Recovered/Resolved]
  - Off label use [Unknown]
  - Bronchitis [Unknown]
  - Urinary tract infection [Unknown]
  - Hepatic function abnormal [Unknown]
  - Gastroenteritis [Unknown]
  - Infusion related reaction [Unknown]
